FAERS Safety Report 16364481 (Version 1)
Quarter: 2019Q2

REPORT INFORMATION
  Report Type: Spontaneous
  Country: CA (occurrence: CA)
  Receive Date: 20190528
  Receipt Date: 20190528
  Transmission Date: 20190711
  Serious: Yes (Disabling)
  Sender: FDA-Public Use
  Company Number: CA-TEVA-2019-CA-1054146

PATIENT
  Age: 71 Year
  Sex: Female
  Weight: 63 kg

DRUGS (2)
  1. ZOLPIDEM TARTRATE. [Concomitant]
     Active Substance: ZOLPIDEM TARTRATE
     Route: 065
  2. CLONAZEPAM. [Suspect]
     Active Substance: CLONAZEPAM
     Indication: STRESS
     Dosage: 4 MILLIGRAM DAILY;
     Route: 048

REACTIONS (7)
  - Fatigue [Unknown]
  - Insomnia [Unknown]
  - Disturbance in attention [Unknown]
  - Feeling abnormal [Unknown]
  - Malaise [Unknown]
  - Social avoidant behaviour [Unknown]
  - Impaired work ability [Unknown]
